FAERS Safety Report 5238698-0 (Version None)
Quarter: 2007Q1

REPORT INFORMATION
  Report Type: 
  Country: None (occurrence: None)
  Receive Date: 20070215
  Receipt Date: 20070209
  Transmission Date: 20070707
  Serious: Yes (Hospitalization, Other)
  Sender: FDA-Public Use
  Company Number: AT-SHR-AT-2007-004796

PATIENT
  Age: 30 Year
  Sex: Female
  Weight: 42 kg

DRUGS (1)
  1. MIRENA [Suspect]
     Dosage: 20 A?G/DAY, CONT
     Dates: start: 20010918, end: 20060427

REACTIONS (7)
  - ABDOMINAL PAIN LOWER [None]
  - ANTEPARTUM HAEMORRHAGE [None]
  - CIRCULATORY COLLAPSE [None]
  - DRUG EXPOSURE DURING PREGNANCY [None]
  - ECTOPIC PREGNANCY [None]
  - FOETAL HEART RATE ABNORMAL [None]
  - PREGNANCY WITH CONTRACEPTIVE DEVICE [None]
